FAERS Safety Report 9021296 (Version 1)
Quarter: 2013Q1

REPORT INFORMATION
  Report Type: Spontaneous
  Country: US (occurrence: US)
  Receive Date: 20130119
  Receipt Date: 20130119
  Transmission Date: 20140127
  Serious: No
  Sender: FDA-Public Use
  Company Number: US-ALLERGAN-1202961US

PATIENT
  Age: 37 Year
  Sex: Female

DRUGS (3)
  1. BOTOX COSMETIC [Suspect]
     Indication: SKIN WRINKLING
     Dosage: 8 UNITS, SINGLE, FOREHEAD
     Route: 030
     Dates: start: 20120214, end: 20120214
  2. BOTOX COSMETIC [Suspect]
     Indication: FACE LIFT
     Dosage: 18 UNITS, CROW^S FEET
     Dates: start: 20120214, end: 20120214
  3. BOTOX COSMETIC [Suspect]
     Dosage: 4 UNITS BOTH EYES
     Dates: start: 20120214, end: 20120214

REACTIONS (2)
  - Dry eye [Unknown]
  - Eyelid sensory disorder [Unknown]
